FAERS Safety Report 8402635-8 (Version None)
Quarter: 2012Q2

REPORT INFORMATION
  Report Type: 
  Country: None (occurrence: None)
  Receive Date: 20120601
  Receipt Date: 20120523
  Transmission Date: 20120825
  Serious: Yes (Hospitalization, Other)
  Sender: FDA-Public Use
  Company Number: PHHO2011US15481

PATIENT
  Sex: Female
  Weight: 54.1 kg

DRUGS (8)
  1. CERTICAN [Suspect]
     Dosage: 0.75 MG, BID
     Route: 048
     Dates: start: 20110910, end: 20120116
  2. PREDNISONE TAB [Suspect]
     Indication: RENAL TRANSPLANT
     Dosage: 2.5 MG, QD
     Route: 048
     Dates: start: 20110128
  3. CERTICAN [Suspect]
     Indication: RENAL TRANSPLANT
     Dosage: 0.75 MG, BID
     Route: 048
     Dates: start: 20110129, end: 20110202
  4. VALCYTE [Suspect]
     Indication: CYTOMEGALOVIRUS VIRAEMIA
     Dosage: 450 MG, BID
     Route: 048
     Dates: start: 20110825
  5. PROGRAF [Suspect]
     Indication: RENAL TRANSPLANT
     Dosage: 01 MG, BID
     Route: 048
     Dates: start: 20110128, end: 20120116
  6. LASIX [Concomitant]
  7. CERTICAN [Suspect]
     Dosage: 1.5 MG, BID
     Route: 048
     Dates: start: 20110203, end: 20110909
  8. LEFLUNOMIDE [Suspect]

REACTIONS (5)
  - PYREXIA [None]
  - HYPOTENSION [None]
  - THROMBOCYTOPENIA [None]
  - DIARRHOEA [None]
  - CYTOMEGALOVIRUS VIRAEMIA [None]
